FAERS Safety Report 14176342 (Version 2)
Quarter: 2017Q4

REPORT INFORMATION
  Report Type: Spontaneous
  Country: US (occurrence: US)
  Receive Date: 20171109
  Receipt Date: 20171208
  Transmission Date: 20180321
  Serious: Yes (Other)
  Sender: FDA-Public Use
  Company Number: US-009507513-1711USA002533

PATIENT
  Age: 76 Year
  Sex: Female
  Weight: 54.42 kg

DRUGS (1)
  1. KEYTRUDA [Suspect]
     Active Substance: PEMBROLIZUMAB
     Indication: LUNG ADENOCARCINOMA
     Dosage: 200 MG, Q3W
     Route: 042
     Dates: start: 20170720, end: 20170822

REACTIONS (4)
  - Haematuria [Recovered/Resolved]
  - Haematuria [Recovered/Resolved]
  - Nephritis [Unknown]
  - Nephritis [Recovered/Resolved]

NARRATIVE: CASE EVENT DATE: 2017
